FAERS Safety Report 7907340-X (Version None)
Quarter: 2011Q4

REPORT INFORMATION
  Report Type: 
  Country: None (occurrence: None)
  Receive Date: 20111110
  Receipt Date: 20111031
  Transmission Date: 20120403
  Serious: Yes (Hospitalization)
  Sender: FDA-Public Use
  Company Number: JP-GLAXOSMITHKLINE-B0760611A

PATIENT
  Age: 19 Year
  Sex: Male

DRUGS (2)
  1. SERETIDE (50MCG/100MCG) [Suspect]
     Indication: ASTHMA
     Route: 055
  2. FLUTICASONE PROPIONATE [Suspect]
     Indication: ASTHMA
     Route: 055

REACTIONS (8)
  - PYREXIA [None]
  - HIV ANTIBODY POSITIVE [None]
  - PNEUMOTHORAX [None]
  - PNEUMOMEDIASTINUM [None]
  - HYPOXIA [None]
  - SUBCUTANEOUS EMPHYSEMA [None]
  - PNEUMOCYSTIS JIROVECI PNEUMONIA [None]
  - DYSPNOEA [None]
